FAERS Safety Report 6478279-4 (Version None)
Quarter: 2009Q4

REPORT INFORMATION
  Report Type: 
  Country: None (occurrence: None)
  Receive Date: 20091207
  Receipt Date: 20090127
  Transmission Date: 20100525
  Serious: No
  Sender: FDA-Public Use
  Company Number: US-AMGEN-KDL330748

PATIENT
  Sex: Female

DRUGS (1)
  1. ENBREL [Suspect]
     Indication: SCLERODERMA
     Route: 058
     Dates: start: 20080101

REACTIONS (3)
  - LOCALISED INFECTION [None]
  - PAIN IN EXTREMITY [None]
  - PURULENT DISCHARGE [None]
